FAERS Safety Report 9786264 (Version 1)
Quarter: 2013Q4

REPORT INFORMATION
  Report Type: Report from Study
  Country: US (occurrence: US)
  Receive Date: 20131227
  Receipt Date: 20131227
  Transmission Date: 20140711
  Serious: Yes (Other)
  Sender: FDA-Public Use
  Company Number: US-B.I. PHARMACEUTICALS,INC./RIDGEFIELD-2013-BI-43306BI

PATIENT
  Sex: Male

DRUGS (4)
  1. GILOTRIF [Suspect]
     Indication: TRACHEAL CANCER
     Dosage: 40 MG
     Route: 048
     Dates: start: 20130918
  2. GILOTRIF [Suspect]
     Indication: LUNG NEOPLASM MALIGNANT
  3. LOPERAMIDE [Concomitant]
  4. EUCERIN CREME [Concomitant]

REACTIONS (2)
  - Positron emission tomogram abnormal [Unknown]
  - Treatment noncompliance [Unknown]
